FAERS Safety Report 9731739 (Version 3)
Quarter: 2013Q4

REPORT INFORMATION
  Report Type: Spontaneous
  Country: US (occurrence: US)
  Receive Date: 20131204
  Receipt Date: 20131206
  Transmission Date: 20140711
  Serious: Yes (Hospitalization)
  Sender: FDA-Public Use
  Company Number: US-BEH-2013037553

PATIENT
  Age: 85 Year
  Sex: Female

DRUGS (17)
  1. CARIMUNE [Suspect]
     Route: 042
     Dates: start: 20130701, end: 20130701
  2. SOLU-MEDROL [Concomitant]
     Indication: PREMEDICATION
  3. BENADRYL [Concomitant]
     Indication: PREMEDICATION
  4. ACETAMINOPHEN [Concomitant]
     Indication: PAIN
     Dosage: 500-650 MG
  5. ALBUTEROL [Concomitant]
  6. ALLOPURINOL [Concomitant]
  7. FOSAMAX [Concomitant]
  8. AMLODIPINE [Concomitant]
  9. ATORVASTATIN [Concomitant]
  10. BIOTIN [Concomitant]
  11. CALCIUM CARBONATE /VITAMIN D3 [Concomitant]
  12. NEXIUM [Concomitant]
  13. FERROUS SULFATE [Concomitant]
  14. FLECAINIDE [Concomitant]
  15. FUROSEMIDE [Concomitant]
  16. GLUCOSAMINE SULFATE [Concomitant]
  17. LEVOTHYROXINE [Concomitant]

REACTIONS (9)
  - Chest pain [Unknown]
  - Chills [Unknown]
  - Chronic obstructive pulmonary disease [Unknown]
  - Asthma [Unknown]
  - Pyrexia [Recovered/Resolved]
  - Vomiting [Unknown]
  - Nausea [Unknown]
  - Cough [Unknown]
  - Hypersensitivity [Unknown]
